FAERS Safety Report 4630459-6 (Version None)
Quarter: 2005Q2

REPORT INFORMATION
  Report Type: 
  Country: None (occurrence: None)
  Receive Date: 20050406
  Receipt Date: 20050323
  Transmission Date: 20051028
  Serious: Yes (Hospitalization, Other)
  Sender: FDA-Public Use
  Company Number: USA050394043

PATIENT
  Age: 71 Year
  Sex: Female
  Weight: 82 kg

DRUGS (2)
  1. HUMULIN N [Suspect]
     Dates: start: 20010101
  2. HUMULIN R [Suspect]
     Dates: start: 20010101

REACTIONS (7)
  - BLINDNESS [None]
  - BLOOD GLUCOSE INCREASED [None]
  - CARDIAC PACEMAKER INSERTION [None]
  - CATARACT [None]
  - DOUBLE VESSEL BYPASS GRAFT [None]
  - HEART RATE DECREASED [None]
  - RETINOPATHY [None]
